FAERS Safety Report 8308920-2 (Version None)
Quarter: 2012Q2

REPORT INFORMATION
  Report Type: 
  Country: None (occurrence: None)
  Receive Date: 20120424
  Receipt Date: 20120420
  Transmission Date: 20120825
  Serious: Yes (Death, Other)
  Sender: FDA-Public Use
  Company Number: PHHY2012US033828

PATIENT
  Age: 62 Year
  Sex: Male

DRUGS (1)
  1. BUFFERIN [Suspect]
     Indication: NEOPLASM MALIGNANT
     Route: 048
     Dates: end: 20100101

REACTIONS (4)
  - PANCREATIC CARCINOMA [None]
  - INCORRECT DRUG ADMINISTRATION DURATION [None]
  - DEATH [None]
  - GENERAL PHYSICAL HEALTH DETERIORATION [None]
